FAERS Safety Report 8383076-9 (Version None)
Quarter: 2012Q2

REPORT INFORMATION
  Report Type: 
  Country: None (occurrence: None)
  Receive Date: 20120524
  Receipt Date: 20120511
  Transmission Date: 20120825
  Serious: Yes (Hospitalization, Other)
  Sender: FDA-Public Use
  Company Number: CA-JNJFOC-20111104360

PATIENT
  Sex: Male
  Weight: 73 kg

DRUGS (2)
  1. QUESTRAN [Concomitant]
  2. REMICADE [Suspect]
     Indication: CROHN'S DISEASE
     Route: 042
     Dates: start: 20060312

REACTIONS (2)
  - TENDON INJURY [None]
  - ACCIDENT AT WORK [None]
